FAERS Safety Report 16787022 (Version 1)
Quarter: 2019Q3

REPORT INFORMATION
  Report Type: Spontaneous
  Country: US (occurrence: US)
  Receive Date: 20190909
  Receipt Date: 20190909
  Transmission Date: 20191005
  Serious: No
  Sender: FDA-Public Use
  Company Number: US-SA-2019SA245249

PATIENT
  Age: 32 Year
  Sex: Female

DRUGS (8)
  1. HYDROXIZINE HCL [Concomitant]
  2. VITAMIN D NOS [Concomitant]
     Active Substance: VITAMIN D NOS
  3. DUPIXENT [Suspect]
     Active Substance: DUPILUMAB
     Indication: DERMATITIS ATOPIC
     Dosage: 300 MG, QOW
     Route: 058
     Dates: start: 20190401
  4. FLUTICASONE. [Concomitant]
     Active Substance: FLUTICASONE
  5. TRIAMCINOLONE ACETONIDE. [Concomitant]
     Active Substance: TRIAMCINOLONE ACETONIDE
  6. ADVAIR HFA [Concomitant]
     Active Substance: FLUTICASONE PROPIONATE\SALMETEROL XINAFOATE
  7. ALOCRIL [Concomitant]
     Active Substance: NEDOCROMIL SODIUM
  8. MONTELUKAST [Concomitant]
     Active Substance: MONTELUKAST SODIUM

REACTIONS (3)
  - Eye pruritus [Unknown]
  - Dermatitis [Unknown]
  - Rash generalised [Unknown]
